FAERS Safety Report 5090752-2 (Version None)
Quarter: 2006Q3

REPORT INFORMATION
  Report Type: 
  Country: None (occurrence: None)
  Receive Date: 20060823
  Receipt Date: 20060816
  Transmission Date: 20061208
  Serious: Yes (Death, Life-Threatening, Hospitalization)
  Sender: FDA-Public Use
  Company Number: 2006-07-0519

PATIENT
  Age: 68 Year
  Sex: Male
  Weight: 70 kg

DRUGS (6)
  1. TEMODAL [Suspect]
     Indication: GLIOBLASTOMA
     Dosage: 140 MG QD ORAL
     Route: 048
     Dates: start: 20060514, end: 20060628
  2. RADIATION THERAPY [Concomitant]
  3. DEPAKENE [Concomitant]
  4. OMEPRAZOLE [Concomitant]
  5. MEDROL [Concomitant]
  6. SOLUPRED [Concomitant]

REACTIONS (7)
  - AGRANULOCYTOSIS [None]
  - APLASIA [None]
  - IMMUNOSUPPRESSION [None]
  - MALAISE [None]
  - PNEUMOCYSTIS JIROVECI PNEUMONIA [None]
  - PYREXIA [None]
  - WHITE BLOOD CELL COUNT DECREASED [None]
